FAERS Safety Report 5513888-8 (Version None)
Quarter: 2007Q4

REPORT INFORMATION
  Report Type: 
  Country: None (occurrence: None)
  Receive Date: 20071109
  Receipt Date: 20071109
  Transmission Date: 20080405
  Serious: No
  Sender: FDA-Public Use
  Company Number: None

PATIENT
  Sex: Female
  Weight: 76.9301 kg

DRUGS (6)
  1. ZINECARD [Suspect]
     Indication: CARDIOTOXICITY
     Dosage: 600MG/M2 EVERY 3 WEEKS IV
     Route: 042
  2. ZINECARD [Suspect]
     Indication: PROPHYLAXIS
     Dosage: 600MG/M2 EVERY 3 WEEKS IV
     Route: 042
  3. ADRIAMYCIN PFS [Concomitant]
  4. CYTOXAN [Concomitant]
  5. ALOXI [Concomitant]
  6. DECADRON [Concomitant]

REACTIONS (2)
  - INFUSION RELATED REACTION [None]
  - SENSATION OF PRESSURE [None]
